FAERS Safety Report 20437550 (Version 1)
Quarter: 2022Q1

REPORT INFORMATION
  Report Type: Spontaneous
  Country: GB (occurrence: GB)
  Receive Date: 20220207
  Receipt Date: 20220207
  Transmission Date: 20220423
  Serious: Yes (Other)
  Sender: FDA-Public Use
  Company Number: None

PATIENT
  Age: 73 Year
  Sex: Female
  Weight: 65 kg

DRUGS (5)
  1. METHOTREXATE SODIUM [Suspect]
     Active Substance: METHOTREXATE SODIUM
     Indication: Polymyalgia rheumatica
     Dosage: 15 MG
     Route: 048
     Dates: start: 20210802, end: 20220110
  2. PREDNISOLONE [Concomitant]
     Active Substance: PREDNISOLONE
  3. RISEDRONATE SODIUM [Concomitant]
     Active Substance: RISEDRONATE SODIUM
  4. ZOPICLONE [Concomitant]
     Active Substance: ZOPICLONE
  5. THEICAL-D3 [Concomitant]

REACTIONS (3)
  - Vision blurred [Recovering/Resolving]
  - Dry eye [Recovering/Resolving]
  - Eye discharge [Recovering/Resolving]

NARRATIVE: CASE EVENT DATE: 20211001
